FAERS Safety Report 5207743-0 (Version None)
Quarter: 2006Q4

REPORT INFORMATION
  Report Type: 
  Country: None (occurrence: None)
  Receive Date: 20061030
  Receipt Date: 20060705
  Transmission Date: 20070319
  Serious: Yes (Death)
  Sender: FDA-Public Use
  Company Number: 2006CT000755

PATIENT
  Age: 79 Year
  Sex: Male
  Weight: 84.369 kg

DRUGS (10)
  1. VENTAVIS [Suspect]
     Indication: PULMONARY HYPERTENSION
     Dosage: 5 UG; 9XD; INH
     Route: 055
     Dates: start: 20050511, end: 20060621
  2. BUMEX [Concomitant]
  3. VITAMIN CAP [Concomitant]
  4. DUONEB [Concomitant]
  5. TYLENOL [Concomitant]
  6. PRAVACHOL [Concomitant]
  7. WARFARIN SODIUM [Concomitant]
  8. DIGOXIN [Concomitant]
  9. SILDENAFIL CITRATE [Concomitant]
  10. TRACLEER [Concomitant]

REACTIONS (2)
  - CARDIAC FAILURE CONGESTIVE [None]
  - PULMONARY HYPERTENSION [None]
